FAERS Safety Report 12067715 (Version 1)
Quarter: 2016Q1

REPORT INFORMATION
  Report Type: Spontaneous
  Country: US (occurrence: None)
  Receive Date: 20160210
  Receipt Date: 20160210
  Transmission Date: 20160526
  Serious: Yes (Death)
  Sender: FDA-Public Use
  Company Number: US-ALSI-201600025

PATIENT
  Age: 75 Year
  Sex: Male

DRUGS (1)
  1. OXYGEN USP OXYGEN [Suspect]
     Active Substance: OXYGEN
     Indication: PRODUCT USED FOR UNKNOWN INDICATION
     Dosage: RESPIRATORY

REACTIONS (2)
  - Intentional product use issue [None]
  - Accident [None]

NARRATIVE: CASE EVENT DATE: 201601
